FAERS Safety Report 7617310-7 (Version None)
Quarter: 2011Q3

REPORT INFORMATION
  Report Type: 
  Country: None (occurrence: None)
  Receive Date: 20110718
  Receipt Date: 20110714
  Transmission Date: 20111222
  Serious: Yes (Death, Other)
  Sender: FDA-Public Use
  Company Number: US-AMGEN-USASP2011035899

PATIENT
  Age: 64 Year
  Sex: Female

DRUGS (1)
  1. NPLATE [Suspect]
     Indication: IDIOPATHIC THROMBOCYTOPENIC PURPURA

REACTIONS (10)
  - DEATH [None]
  - TRANSAMINASES INCREASED [None]
  - SPINAL LAMINECTOMY [None]
  - MULTI-ORGAN FAILURE [None]
  - PANCYTOPENIA [None]
  - RENAL FAILURE ACUTE [None]
  - DIABETES MELLITUS [None]
  - EPISTAXIS [None]
  - HYPERTENSION [None]
  - DRUG INEFFECTIVE [None]
